FAERS Safety Report 23733433 (Version 1)
Quarter: 2024Q2

REPORT INFORMATION
  Report Type: Spontaneous
  Country: IN (occurrence: IN)
  Receive Date: 20240411
  Receipt Date: 20240411
  Transmission Date: 20240716
  Serious: Yes (Death, Hospitalization, Other)
  Sender: FDA-Public Use
  Company Number: IN-FreseniusKabi-FK202405822

PATIENT
  Age: 4 Year
  Sex: Female

DRUGS (2)
  1. CARBOPLATIN [Suspect]
     Active Substance: CARBOPLATIN
     Indication: Squamous cell carcinoma of skin
     Dosage: AREA UNDER CURVE = 6?3 WEEKLY
  2. PACLITAXEL [Suspect]
     Active Substance: PACLITAXEL
     Indication: Squamous cell carcinoma of skin
     Dosage: 3 WEEKLY

REACTIONS (7)
  - Acute hepatic failure [Fatal]
  - Acute kidney injury [Fatal]
  - Dystonia [Fatal]
  - Sensorimotor disorder [Fatal]
  - Haemodynamic instability [Fatal]
  - Toxicity to various agents [Fatal]
  - Coagulopathy [Fatal]
